FAERS Safety Report 9225778 (Version 1)
Quarter: 2013Q2

REPORT INFORMATION
  Report Type: Spontaneous
  Country: US (occurrence: None)
  Receive Date: 20130410
  Receipt Date: 20130410
  Transmission Date: 20140414
  Serious: Yes (Hospitalization)
  Sender: FDA-Public Use
  Company Number: None

PATIENT
  Age: 82 Year
  Sex: Male
  Weight: 85.3 kg

DRUGS (10)
  1. ASA [Suspect]
     Indication: PROPHYLAXIS
     Route: 048
  2. IBUPROFEN [Suspect]
     Dosage: QHR PRN
     Route: 048
  3. GLIPIZIDE [Concomitant]
  4. EZETIMIBE/SIMVASTATIN [Concomitant]
  5. LASIX [Concomitant]
  6. MVI [Concomitant]
  7. TYLENOL [Concomitant]
  8. VERAPAMIL [Concomitant]
  9. LISINOPRIL [Concomitant]
  10. EXENATIDE/BYETTA [Concomitant]

REACTIONS (6)
  - Asthenia [None]
  - Dizziness [None]
  - Anaemia [None]
  - Upper gastrointestinal haemorrhage [None]
  - Gastric ulcer [None]
  - Intestinal ulcer [None]
